FAERS Safety Report 6124283-5 (Version None)
Quarter: 2009Q1

REPORT INFORMATION
  Report Type: 
  Country: None (occurrence: None)
  Receive Date: 20090317
  Receipt Date: 20090309
  Transmission Date: 20090719
  Serious: Yes (Hospitalization)
  Sender: FDA-Public Use
  Company Number: TRP_06120_2009

PATIENT
  Sex: Male

DRUGS (2)
  1. RIBAVIRIN [Suspect]
     Indication: HEPATITIS C
     Dosage: (1200 MG, DAILY [DISCONTINUED FOR 2 WEEKS; RESTARTED 19-JAN-09])
     Dates: start: 20081117
  2. PEGASYS [Suspect]
     Indication: HEPATITIS C
     Dosage: (180 UG [DISCONTINUED FOR 2 WEEKS; RESTARTED 19-JAN-09])
     Dates: start: 20081117

REACTIONS (3)
  - DIARRHOEA [None]
  - SALMONELLOSIS [None]
  - SLUGGISHNESS [None]
